FAERS Safety Report 18204206 (Version 1)
Quarter: 2020Q3

REPORT INFORMATION
  Report Type: Spontaneous
  Country: US (occurrence: US)
  Receive Date: 20200827
  Receipt Date: 20200827
  Transmission Date: 20201103
  Serious: Yes (Other)
  Sender: FDA-Public Use
  Company Number: US-PFIZER INC-2020329308

PATIENT
  Age: 20 Year
  Sex: Female
  Weight: 60 kg

DRUGS (1)
  1. AMINOPHYLLINE. [Suspect]
     Active Substance: AMINOPHYLLINE
     Dosage: UNK

REACTIONS (2)
  - Intentional overdose [Recovering/Resolving]
  - Suicide attempt [Recovering/Resolving]
